FAERS Safety Report 5935000-3 (Version None)
Quarter: 2008Q4

REPORT INFORMATION
  Report Type: 
  Country: None (occurrence: None)
  Receive Date: 20081029
  Receipt Date: 20081029
  Transmission Date: 20090506
  Serious: Yes (Hospitalization)
  Sender: FDA-Public Use
  Company Number: None

PATIENT
  Age: 61 Year
  Sex: Male
  Weight: 83.0083 kg

DRUGS (3)
  1. CETUXIMAB [Suspect]
     Indication: PANCREATIC CARCINOMA
     Dosage: 500MG/M2 Q2WK IV
     Route: 042
     Dates: start: 20081010
  2. OXALIPLATIN [Suspect]
     Indication: PANCREATIC CARCINOMA
     Dosage: 100 MG/M2 Q2WK IV
     Route: 042
     Dates: start: 20081010
  3. GEMZAR [Suspect]
     Indication: PANCREATIC CARCINOMA
     Dosage: 1000MG/M2 Q2WK IV
     Route: 042
     Dates: start: 20081010

REACTIONS (5)
  - ABDOMINAL PAIN [None]
  - ASPARTATE AMINOTRANSFERASE INCREASED [None]
  - BILIARY TRACT DISORDER [None]
  - NEUTROPENIA [None]
  - PYREXIA [None]
